FAERS Safety Report 7874886-2 (Version None)
Quarter: 2011Q4

REPORT INFORMATION
  Report Type: 
  Country: None (occurrence: None)
  Receive Date: 20111031
  Receipt Date: 20111020
  Transmission Date: 20120403
  Serious: Yes (Hospitalization, Other)
  Sender: FDA-Public Use
  Company Number: JP-JNJFOC-20090307362

PATIENT
  Age: 46 Year
  Sex: Female

DRUGS (3)
  1. TACROLIMUS [Suspect]
     Indication: RENAL AND PANCREAS TRANSPLANT REJECTION
     Dosage: 4 TO 6 NG/ML
     Route: 041
  2. ORTHOCLONE OKT3 [Suspect]
     Indication: RENAL AND PANCREAS TRANSPLANT REJECTION
     Route: 042
  3. MYCOPHENOLATE MOFETIL [Suspect]
     Indication: RENAL AND PANCREAS TRANSPLANT REJECTION
     Route: 048

REACTIONS (2)
  - ANAEMIA [None]
  - EPSTEIN-BARR VIRUS ASSOCIATED LYMPHOPROLIFERATIVE DISORDER [None]
